FAERS Safety Report 22390923 (Version 1)
Quarter: 2023Q2

REPORT INFORMATION
  Report Type: Spontaneous
  Country: ES (occurrence: ES)
  Receive Date: 20230601
  Receipt Date: 20230601
  Transmission Date: 20230721
  Serious: Yes (Other)
  Sender: FDA-Public Use
  Company Number: None

PATIENT
  Age: 74 Year
  Sex: Male

DRUGS (3)
  1. ASPIRIN [Interacting]
     Active Substance: ASPIRIN
     Indication: Acute coronary syndrome
     Dosage: ACETILSALICILICO ACIDO (176A)
     Route: 065
     Dates: start: 202303
  2. CLOPIDOGREL [Interacting]
     Active Substance: CLOPIDOGREL BISULFATE
     Indication: Acute coronary syndrome
     Dosage: CLOPIDOGREL (7300A)
     Route: 065
     Dates: start: 202303
  3. ENOXAPARIN SODIUM [Interacting]
     Active Substance: ENOXAPARIN SODIUM
     Indication: Atrial fibrillation
     Dosage: FORM STRENGTH : 8,000 IU (80 MG)/ 0.8 ML, 30 PRE-FILLED SYRINGES OF 0.8 ML
     Route: 065
     Dates: start: 20230310, end: 20230323

REACTIONS (2)
  - Abdominal wall haematoma [Recovered/Resolved]
  - Drug interaction [Unknown]

NARRATIVE: CASE EVENT DATE: 20230323
